FAERS Safety Report 18633702 (Version 1)
Quarter: 2020Q4

REPORT INFORMATION
  Report Type: Spontaneous
  Country: US (occurrence: US)
  Receive Date: 20201218
  Receipt Date: 20201218
  Transmission Date: 20210114
  Serious: Yes (Disabling)
  Sender: FDA-Public Use
  Company Number: None

PATIENT
  Age: 72 Year
  Sex: Female

DRUGS (3)
  1. EVISTA [Concomitant]
     Active Substance: RALOXIFENE HYDROCHLORIDE
  2. CENTRUM [Concomitant]
     Active Substance: VITAMINS
  3. RILUZOLE. [Suspect]
     Active Substance: RILUZOLE

REACTIONS (4)
  - Condition aggravated [None]
  - Poverty of speech [None]
  - Multifocal motor neuropathy [None]
  - Amyotrophic lateral sclerosis [None]

NARRATIVE: CASE EVENT DATE: 20160316
